FAERS Safety Report 5458615-8 (Version None)
Quarter: 2007Q3

REPORT INFORMATION
  Report Type: 
  Country: None (occurrence: None)
  Receive Date: 20070919
  Receipt Date: 20070412
  Transmission Date: 20080115
  Serious: No
  Sender: FDA-Public Use
  Company Number: US-ASTRAZENECA-2007UW07174

PATIENT
  Age: 54 Year
  Sex: Male
  Weight: 61.2 kg

DRUGS (7)
  1. SEROQUEL [Suspect]
     Indication: BIPOLAR I DISORDER
     Route: 048
     Dates: start: 20070401
  2. XANAX [Concomitant]
  3. ALBUTEROL [Concomitant]
  4. ADVAIR DISKUS 100/50 [Concomitant]
  5. SPIRIVA [Concomitant]
  6. NASONEX [Concomitant]
  7. THEOPHYLLINE [Concomitant]

REACTIONS (4)
  - DRY MOUTH [None]
  - DYSARTHRIA [None]
  - FEELING ABNORMAL [None]
  - HYPERSOMNIA [None]
